FAERS Safety Report 5304723-1 (Version None)
Quarter: 2007Q2

REPORT INFORMATION
  Report Type: 
  Country: None (occurrence: None)
  Receive Date: 20070423
  Receipt Date: 20070411
  Transmission Date: 20071010
  Serious: Yes (Death, Other)
  Sender: FDA-Public Use
  Company Number: JP-BRISTOL-MYERS SQUIBB COMPANY-13754312

PATIENT
  Age: 32 Year
  Sex: Male

DRUGS (7)
  1. EFAVIRENZ [Suspect]
     Indication: ACQUIRED IMMUNODEFICIENCY SYNDROME
     Route: 048
  2. ENDOXAN [Suspect]
     Indication: PLASMABLASTIC LYMPHOMA
     Route: 042
  3. DOXORUBICIN HCL [Suspect]
     Indication: PLASMABLASTIC LYMPHOMA
     Route: 042
  4. ONCOVIN [Suspect]
     Indication: PLASMABLASTIC LYMPHOMA
     Route: 042
  5. EPIVIR [Suspect]
     Indication: ACQUIRED IMMUNODEFICIENCY SYNDROME
     Route: 048
  6. RETROVIR [Suspect]
     Indication: ACQUIRED IMMUNODEFICIENCY SYNDROME
     Route: 048
  7. PREDONINE [Suspect]
     Indication: PLASMABLASTIC LYMPHOMA
     Route: 042

REACTIONS (4)
  - BONE MARROW FAILURE [None]
  - DEHYDRATION [None]
  - DIARRHOEA [None]
  - RENAL DISORDER [None]
